FAERS Safety Report 7718154-8 (Version None)
Quarter: 2011Q3

REPORT INFORMATION
  Report Type: 
  Country: None (occurrence: None)
  Receive Date: 20110830
  Receipt Date: 20110820
  Transmission Date: 20111222
  Serious: Yes (Other)
  Sender: FDA-Public Use
  Company Number: US-JNJFOC-20110607695

PATIENT
  Sex: Male

DRUGS (5)
  1. REMICADE [Suspect]
     Dosage: #3
     Route: 042
     Dates: start: 20101216
  2. TYLENOL-500 [Concomitant]
     Indication: PREMEDICATION
     Dates: start: 20101104
  3. REMICADE [Suspect]
     Dosage: 1ST INFUSION
     Route: 042
     Dates: start: 20101104
  4. REMICADE [Suspect]
     Route: 042
     Dates: start: 20110228
  5. REMICADE [Suspect]
     Indication: PSORIATIC ARTHROPATHY
     Dosage: 2ND INFUSION
     Route: 042
     Dates: start: 20101118

REACTIONS (11)
  - NEPHROLITHIASIS [None]
  - IGA NEPHROPATHY [None]
  - PSORIASIS [None]
  - HERNIA [None]
  - KIDNEY INFECTION [None]
  - COUGH [None]
  - LUPUS-LIKE SYNDROME [None]
  - DIABETES MELLITUS [None]
  - RESPIRATORY TRACT CONGESTION [None]
  - PAIN IN EXTREMITY [None]
  - BENIGN PROSTATIC HYPERPLASIA [None]
